FAERS Safety Report 18362069 (Version 1)
Quarter: 2020Q4

REPORT INFORMATION
  Report Type: Other
  Country: CA (occurrence: CA)
  Receive Date: 20201009
  Receipt Date: 20201009
  Transmission Date: 20210114
  Serious: Yes (Other)
  Sender: FDA-Public Use
  Company Number: CA-CELLTRION INC.-2020CA028544

PATIENT

DRUGS (8)
  1. GABAPENTIN. [Concomitant]
     Active Substance: GABAPENTIN
  2. METFORMIN [Concomitant]
     Active Substance: METFORMIN HYDROCHLORIDE
     Route: 065
  3. RITUXIMAB (UNKNOWN) [Suspect]
     Active Substance: RITUXIMAB
     Indication: PULMONARY FIBROSIS
  4. TELMISARTAN. [Concomitant]
     Active Substance: TELMISARTAN
  5. RITUXIMAB (UNKNOWN) [Suspect]
     Active Substance: RITUXIMAB
     Indication: SCLERODERMA
     Dosage: 500 MG, 1 EVERY 6 MONTHS
     Route: 042
  6. DILTIAZEM. [Concomitant]
     Active Substance: DILTIAZEM
  7. DIAMICRON [Concomitant]
     Active Substance: GLICLAZIDE
  8. NABILONE [Concomitant]
     Active Substance: NABILONE

REACTIONS (3)
  - Off label use [Not Recovered/Not Resolved]
  - Product use in unapproved indication [Not Recovered/Not Resolved]
  - Anaemia [Not Recovered/Not Resolved]
